FAERS Safety Report 12591629 (Version 1)
Quarter: 2016Q3

REPORT INFORMATION
  Report Type: Spontaneous
  Country: GB (occurrence: GB)
  Receive Date: 20160726
  Receipt Date: 20160726
  Transmission Date: 20161109
  Serious: Yes (Other)
  Sender: FDA-Public Use
  Company Number: GB-DRREDDYS-GER/UKI/16/0081581

PATIENT
  Age: 74 Year
  Sex: Male

DRUGS (5)
  1. LEVETIRACETAM. [Suspect]
     Active Substance: LEVETIRACETAM
  2. VITAMIN D [Concomitant]
     Active Substance: CHOLECALCIFEROL
     Indication: PRODUCT USED FOR UNKNOWN INDICATION
  3. LEVETIRACETAM. [Suspect]
     Active Substance: LEVETIRACETAM
     Indication: PRODUCT USED FOR UNKNOWN INDICATION
     Dates: start: 201605
  4. LEVETIRACETAM. [Suspect]
     Active Substance: LEVETIRACETAM
  5. ASPIRIN. [Concomitant]
     Active Substance: ASPIRIN
     Indication: PRODUCT USED FOR UNKNOWN INDICATION

REACTIONS (2)
  - Skin discolouration [Unknown]
  - Dysuria [Unknown]
